FAERS Safety Report 14371625 (Version 1)
Quarter: 2018Q1

REPORT INFORMATION
  Report Type: Spontaneous
  Country: US (occurrence: US)
  Receive Date: 20180110
  Receipt Date: 20180110
  Transmission Date: 20180509
  Serious: No
  Sender: FDA-Public Use
  Company Number: US-GLAXOSMITHKLINE-US2018001563

PATIENT
  Age: 40 Year
  Sex: Female

DRUGS (1)
  1. ABREVA [Suspect]
     Active Substance: DOCOSANOL
     Indication: ORAL HERPES
     Dosage: UNK
     Dates: start: 20171220, end: 20171222

REACTIONS (4)
  - Blister [Unknown]
  - Hypersensitivity [Unknown]
  - Condition aggravated [Unknown]
  - Nasal oedema [Unknown]

NARRATIVE: CASE EVENT DATE: 20171222
